FAERS Safety Report 6701513-X (Version None)
Quarter: 2010Q2

REPORT INFORMATION
  Report Type: 
  Country: None (occurrence: None)
  Receive Date: 20100429
  Receipt Date: 20100419
  Transmission Date: 20101027
  Serious: No
  Sender: FDA-Public Use
  Company Number: JP-JNJFOC-20100401673

PATIENT
  Age: 30 Year
  Sex: Female

DRUGS (2)
  1. DUROTEP [Suspect]
     Indication: SCOLIOSIS
     Route: 062
  2. DUROTEP [Suspect]
     Indication: BACK PAIN
     Route: 062

REACTIONS (5)
  - HEADACHE [None]
  - INADEQUATE ANALGESIA [None]
  - MUSCULOSKELETAL STIFFNESS [None]
  - NAUSEA [None]
  - WRONG TECHNIQUE IN DRUG USAGE PROCESS [None]
